FAERS Safety Report 18633347 (Version 1)
Quarter: 2020Q4

REPORT INFORMATION
  Report Type: Spontaneous
  Country: MY (occurrence: MY)
  Receive Date: 20201218
  Receipt Date: 20201218
  Transmission Date: 20210114
  Serious: Yes (Other)
  Sender: FDA-Public Use
  Company Number: MY-PFIZER INC-2020496768

PATIENT
  Age: 15 Year
  Sex: Male

DRUGS (1)
  1. DBL METHOTREXATE [Suspect]
     Active Substance: METHOTREXATE SODIUM
     Indication: ACUTE LYMPHOCYTIC LEUKAEMIA
     Dosage: 7650 MG, DAILY
     Route: 041

REACTIONS (6)
  - Vomiting [Recovering/Resolving]
  - Blood bilirubin increased [Recovering/Resolving]
  - Stomatitis [Recovering/Resolving]
  - Tongue ulceration [Recovering/Resolving]
  - Prescribed overdose [Unknown]
  - Blood creatine increased [Recovering/Resolving]
